FAERS Safety Report 15223652 (Version 1)
Quarter: 2018Q3

REPORT INFORMATION
  Report Type: Spontaneous
  Country: US (occurrence: US)
  Receive Date: 20180705
  Receipt Date: 20180705
  Transmission Date: 20181010
  Serious: Yes (Hospitalization)
  Sender: FDA-Public Use
  Company Number: None

PATIENT
  Age: 35 Year
  Sex: Female
  Weight: 77.85 kg

DRUGS (2)
  1. IRON PILLS [Concomitant]
     Active Substance: IRON
  2. LISINOPRIL?HCTZ SUBSTITUTED FOR ZESTORETIC [Suspect]
     Active Substance: HYDROCHLOROTHIAZIDE\LISINOPRIL
     Indication: HYPERTENSION
     Dosage: ?          QUANTITY:30 TABLET(S);?
     Route: 048
     Dates: start: 20180611, end: 20180703

REACTIONS (3)
  - Tonsillar inflammation [None]
  - Swelling face [None]
  - Pharyngeal oedema [None]

NARRATIVE: CASE EVENT DATE: 20180703
